FAERS Safety Report 22060893 (Version 1)
Quarter: 2023Q1

REPORT INFORMATION
  Report Type: Spontaneous
  Country: ES (occurrence: ES)
  Receive Date: 20230303
  Receipt Date: 20230303
  Transmission Date: 20230418
  Serious: Yes (Other)
  Sender: FDA-Public Use
  Company Number: ES-AMERICAN REGENT INC-2023000528

PATIENT
  Age: 83 Year
  Sex: Female

DRUGS (1)
  1. FERINJECT [Suspect]
     Active Substance: FERRIC CARBOXYMALTOSE
     Indication: Pancytopenia
     Dosage: UNK
     Route: 042
     Dates: start: 20221216, end: 20230207

REACTIONS (2)
  - Iron overload [Unknown]
  - Medication error [Unknown]

NARRATIVE: CASE EVENT DATE: 20230207
